FAERS Safety Report 7309368-X (Version None)
Quarter: 2011Q1

REPORT INFORMATION
  Report Type: 
  Country: None (occurrence: None)
  Receive Date: 20110223
  Receipt Date: 20101116
  Transmission Date: 20110831
  Serious: Yes (Other)
  Sender: FDA-Public Use
  Company Number: PHHY2010US80820

PATIENT
  Sex: Female
  Weight: 57 kg

DRUGS (9)
  1. SIMVASTATIN [Concomitant]
     Dosage: 20 MG
  2. IMODIUM [Concomitant]
  3. ASPIRIN [Concomitant]
     Dosage: 81 MG DAILY
     Route: 048
  4. ROBINUL FORTE [Concomitant]
     Dosage: 2 MG TWICE DAILY
  5. PROTONIX [Concomitant]
     Dosage: 40 MG
  6. GLEEVEC [Suspect]
     Dosage: 600 MG DAILY
     Route: 048
  7. ZOLOFT [Concomitant]
  8. GLEEVEC [Suspect]
     Indication: DESMOID TUMOUR
     Dosage: 400 MG DAILY
     Route: 048
     Dates: start: 20100801
  9. IRON [Concomitant]

REACTIONS (7)
  - NAUSEA [None]
  - VOMITING [None]
  - DYSPEPSIA [None]
  - NEOPLASM PROGRESSION [None]
  - NEUTROPENIA [None]
  - HALLUCINATION [None]
  - MALAISE [None]
